FAERS Safety Report 15423821 (Version 1)
Quarter: 2018Q3

REPORT INFORMATION
  Report Type: Spontaneous
  Country: US (occurrence: US)
  Receive Date: 20180920
  Receipt Date: 20180920
  Transmission Date: 20181010
  Serious: Yes (Life-Threatening, Hospitalization, Other)
  Sender: FDA-Public Use
  Company Number: None

PATIENT
  Age: 40 Year
  Sex: Female
  Weight: 47.7 kg

DRUGS (13)
  1. VITAMINS [Concomitant]
     Active Substance: VITAMINS
  2. SYNTHROID [Concomitant]
     Active Substance: LEVOTHYROXINE SODIUM
  3. TOPRIMATE [Suspect]
     Active Substance: TOPIRAMATE
  4. PRILOSEC [Concomitant]
     Active Substance: OMEPRAZOLE MAGNESIUM
  5. METOCLOPRAMIDE. [Suspect]
     Active Substance: METOCLOPRAMIDE
     Indication: IMPAIRED GASTRIC EMPTYING
     Dosage: ?          QUANTITY:1 DF DOSAGE FORM;?
     Route: 048
     Dates: start: 20180716, end: 20180826
  6. PREDNISONE. [Concomitant]
     Active Substance: PREDNISONE
  7. SEROQUILL [Concomitant]
  8. CYMBALTA [Concomitant]
     Active Substance: DULOXETINE HYDROCHLORIDE
  9. PLAQUENILL [Concomitant]
  10. GARLIC. [Concomitant]
     Active Substance: GARLIC
  11. ACTIVATE CHARCOAL [Concomitant]
  12. IRON [Concomitant]
     Active Substance: IRON
  13. ZANTAC [Concomitant]
     Active Substance: RANITIDINE HYDROCHLORIDE

REACTIONS (2)
  - Depression [None]
  - Suicide attempt [None]

NARRATIVE: CASE EVENT DATE: 20180826
